FAERS Safety Report 5563903-0 (Version None)
Quarter: 2007Q4

REPORT INFORMATION
  Report Type: 
  Country: None (occurrence: None)
  Receive Date: 20071217
  Receipt Date: 20071018
  Transmission Date: 20080405
  Serious: No
  Sender: FDA-Public Use
  Company Number: US-ASTRAZENECA-2007UW24285

PATIENT
  Age: 73 Year
  Sex: Female
  Weight: 68 kg

DRUGS (9)
  1. CRESTOR [Suspect]
     Indication: BLOOD CHOLESTEROL INCREASED
     Route: 048
     Dates: start: 20070901
  2. CRESTOR [Suspect]
     Dosage: GRADUALLY INCREASED DOSE TO 40 MG
     Route: 048
     Dates: start: 20070501, end: 20070901
  3. OMEPRAZOLE [Concomitant]
  4. LISINOPRIL [Concomitant]
  5. CYMBALTA [Concomitant]
  6. IRON [Concomitant]
  7. LASIX [Concomitant]
  8. METOPROLOL TARTRATE [Concomitant]
  9. ALBUTEROL [Concomitant]

REACTIONS (2)
  - BURNING SENSATION [None]
  - PAIN IN EXTREMITY [None]
